FAERS Safety Report 23439348 (Version 1)
Quarter: 2024Q1

REPORT INFORMATION
  Report Type: Spontaneous
  Country: US (occurrence: US)
  Receive Date: 20240124
  Receipt Date: 20240124
  Transmission Date: 20240410
  Serious: Yes (Death, Other)
  Sender: FDA-Public Use
  Company Number: US-AMGEN-USASP2024013031

PATIENT
  Age: 80 Year
  Sex: Male

DRUGS (1)
  1. RITUXIMAB [Suspect]
     Active Substance: RITUXIMAB
     Indication: Extranodal marginal zone B-cell lymphoma (BALT type)
     Dosage: 8 CYCLES
     Route: 065

REACTIONS (2)
  - Death [Fatal]
  - Extranodal marginal zone B-cell lymphoma (BALT type) [Recovered/Resolved]
